FAERS Safety Report 4300268-6 (Version None)
Quarter: 2004Q1

REPORT INFORMATION
  Report Type: 
  Country: None (occurrence: None)
  Receive Date: 20040218
  Receipt Date: 20040129
  Transmission Date: 20041129
  Serious: Yes (Death, Hospitalization)
  Sender: FDA-Public Use
  Company Number: EWC021233407

PATIENT
  Age: 72 Year
  Sex: Male

DRUGS (1)
  1. GEMZAR [Suspect]
     Indication: BLADDER CANCER
     Dosage: 1580 MG
     Dates: start: 20020619, end: 20020619

REACTIONS (7)
  - ERYTHEMA [None]
  - FEBRILE NEUTROPENIA [None]
  - LETHARGY [None]
  - NIKOLSKY'S SIGN [None]
  - PYREXIA [None]
  - RASH [None]
  - TOXIC EPIDERMAL NECROLYSIS [None]
